FAERS Safety Report 7979829-9 (Version None)
Quarter: 2011Q4

REPORT INFORMATION
  Report Type: 
  Country: None (occurrence: None)
  Receive Date: 20111214
  Receipt Date: 20111206
  Transmission Date: 20120403
  Serious: Yes (Other)
  Sender: FDA-Public Use
  Company Number: US-ELI_LILLY_AND_COMPANY-US201112002036

PATIENT
  Age: 45 Year
  Sex: Male

DRUGS (1)
  1. AXIRON [Suspect]
     Dosage: UNK, UNKNOWN
     Route: 065

REACTIONS (10)
  - DIABETES MELLITUS [None]
  - ANXIETY [None]
  - BENIGN PROSTATIC HYPERPLASIA [None]
  - DEPRESSION [None]
  - PROSTATE CANCER [None]
  - ERECTILE DYSFUNCTION [None]
  - ARTHRITIS [None]
  - PAIN [None]
  - CORONARY ARTERY DISEASE [None]
  - PROSTATITIS [None]
